FAERS Safety Report 4656760-8 (Version None)
Quarter: 2005Q2

REPORT INFORMATION
  Report Type: 
  Country: None (occurrence: None)
  Receive Date: 20050506
  Receipt Date: 20050427
  Transmission Date: 20051028
  Serious: Yes (Death, Other)
  Sender: FDA-Public Use
  Company Number: 2005-04-2263

PATIENT
  Sex: Male

DRUGS (4)
  1. SALBUTAMOL SULPHATE ORAL AEROSOL [Suspect]
     Dosage: 100 MCG Q2H ORAL AER INH
     Route: 055
  2. BECLOMETHASONE ORAL AEROSOL [Suspect]
     Dosage: 250 MCG BID ORAL AER INH
     Route: 055
  3. ATROVENT [Suspect]
     Dosage: 20 MCG QID ORAL AER INH
     Route: 055
  4. THEOPHYLLINE [Suspect]
     Dosage: 300 MG BID

REACTIONS (3)
  - EMPHYSEMA [None]
  - LUNG INFECTION PSEUDOMONAL [None]
  - PNEUMOCONIOSIS [None]
